FAERS Safety Report 8051309-4 (Version None)
Quarter: 2012Q1

REPORT INFORMATION
  Report Type: 
  Country: None (occurrence: None)
  Receive Date: 20120117
  Receipt Date: 20120109
  Transmission Date: 20120608
  Serious: Yes (Hospitalization)
  Sender: FDA-Public Use
  Company Number: US-ASTRAZENECA-2011SE40634

PATIENT
  Age: 49 Year
  Sex: Male
  Weight: 72.6 kg

DRUGS (4)
  1. VALIUM [Concomitant]
  2. SEROQUEL [Suspect]
     Indication: SCHIZOPHRENIA, PARANOID TYPE
     Route: 048
  3. SEROQUEL [Suspect]
     Indication: BIPOLAR DISORDER
     Route: 048
  4. AMBIEN [Concomitant]

REACTIONS (23)
  - TREATMENT NONCOMPLIANCE [None]
  - AGGRESSION [None]
  - THINKING ABNORMAL [None]
  - DELUSION OF GRANDEUR [None]
  - DRUG DOSE OMISSION [None]
  - INSOMNIA [None]
  - VIOLENCE-RELATED SYMPTOM [None]
  - HALLUCINATION, AUDITORY [None]
  - PSYCHOMOTOR HYPERACTIVITY [None]
  - ANXIETY [None]
  - CONFUSIONAL STATE [None]
  - LOGORRHOEA [None]
  - MANIA [None]
  - DEPRESSION [None]
  - OBSESSIVE THOUGHTS [None]
  - TACHYPHRENIA [None]
  - IRRITABILITY [None]
  - DELUSIONAL DISORDER, UNSPECIFIED TYPE [None]
  - PARANOIA [None]
  - CLAUSTROPHOBIA [None]
  - ACTIVITIES OF DAILY LIVING IMPAIRED [None]
  - EUPHORIC MOOD [None]
  - LOOSE ASSOCIATIONS [None]
